FAERS Safety Report 8071399-2 (Version None)
Quarter: 2012Q1

REPORT INFORMATION
  Report Type: 
  Country: None (occurrence: None)
  Receive Date: 20120125
  Receipt Date: 20120120
  Transmission Date: 20120608
  Serious: No
  Sender: FDA-Public Use
  Company Number: JP-PFIZER INC-2010156323

PATIENT
  Age: 74 Year
  Sex: Male

DRUGS (4)
  1. LEVOFLOXACIN [Concomitant]
     Dosage: 400 MG, DAILY
  2. ZITHROMAX [Suspect]
     Indication: ATYPICAL MYCOBACTERIAL PNEUMONIA
     Dosage: 250 MG, DAILY
     Route: 048
     Dates: start: 20100223, end: 20100331
  3. ETHAMBUTOL [Concomitant]
  4. RIFABUTIN [Suspect]
     Dosage: 300 MG, DAILY

REACTIONS (3)
  - NAUSEA [None]
  - DECREASED APPETITE [None]
  - DIARRHOEA [None]
